FAERS Safety Report 21296496 (Version 1)
Quarter: 2022Q3

REPORT INFORMATION
  Report Type: Report from Study
  Country: FR (occurrence: FR)
  Receive Date: 20220906
  Receipt Date: 20220906
  Transmission Date: 20221026
  Serious: Yes (Death, Other)
  Sender: FDA-Public Use
  Company Number: FR-SA-200310065FR

PATIENT
  Age: 39 Year
  Sex: Female
  Weight: 57 kg

DRUGS (2)
  1. DOCETAXEL [Suspect]
     Active Substance: DOCETAXEL
     Indication: Breast cancer female
     Dosage: 75 MG/M2, QCY
     Dates: start: 200301
  2. DOXORUBICIN [Suspect]
     Active Substance: DOXORUBICIN
     Indication: Breast cancer female
     Dosage: 50 MG/M2, QCY
     Dates: start: 200301

REACTIONS (12)
  - Peritonitis [Fatal]
  - Pseudomonas infection [Fatal]
  - Pseudomonal sepsis [Fatal]
  - Septic shock [Fatal]
  - Febrile neutropenia [Fatal]
  - Diverticulitis [Fatal]
  - Diarrhoea [Fatal]
  - Abdominal pain [Fatal]
  - Colitis [Fatal]
  - Large intestine perforation [Fatal]
  - Multiple organ dysfunction syndrome [Fatal]
  - Gastrointestinal disorder [Unknown]

NARRATIVE: CASE EVENT DATE: 20030101
